FAERS Safety Report 4645766-0 (Version None)
Quarter: 2005Q2

REPORT INFORMATION
  Report Type: 
  Country: None (occurrence: None)
  Receive Date: 20050425
  Receipt Date: 20050418
  Transmission Date: 20051028
  Serious: Yes (Hospitalization)
  Sender: FDA-Public Use
  Company Number: 2005CG00763

PATIENT
  Age: 51 Year
  Sex: Female

DRUGS (6)
  1. TENORMIN [Suspect]
     Indication: HYPERTENSION
     Dates: start: 19970101, end: 20041201
  2. LUTENYL [Suspect]
     Indication: CONTRACEPTION
     Dates: start: 20030101, end: 20040319
  3. LUTENYL [Suspect]
     Indication: ENDOMETRIAL HYPERTROPHY
     Dates: start: 20030101, end: 20040319
  4. LUTENYL [Suspect]
     Indication: CONTRACEPTION
     Dosage: 100 MG MONTH PO
     Route: 048
     Dates: start: 20040319, end: 20041201
  5. LUTENYL [Suspect]
     Indication: ENDOMETRIAL HYPERTROPHY
     Dosage: 100 MG MONTH PO
     Route: 048
     Dates: start: 20040319, end: 20041201
  6. ETIOVEN [Suspect]
     Dates: end: 20041201

REACTIONS (2)
  - CEREBRAL VENOUS THROMBOSIS [None]
  - ENDOMETRIAL HYPERTROPHY [None]
